FAERS Safety Report 20662896 (Version 1)
Quarter: 2022Q2

REPORT INFORMATION
  Report Type: Spontaneous
  Country: ES (occurrence: ES)
  Receive Date: 20220401
  Receipt Date: 20220401
  Transmission Date: 20220720
  Serious: Yes (Other)
  Sender: FDA-Public Use
  Company Number: ES-JNJFOC-20210629119

PATIENT
  Age: 52 Year
  Sex: Male
  Weight: 65.9 kg

DRUGS (14)
  1. ADALIMUMAB [Suspect]
     Active Substance: ADALIMUMAB
     Indication: Crohn^s disease
     Dosage: UNK
     Route: 058
     Dates: start: 20190613
  2. STELARA [Suspect]
     Active Substance: USTEKINUMAB
     Indication: Crohn^s disease
     Dosage: UNK
     Route: 058
     Dates: start: 20190613
  3. STELARA [Suspect]
     Active Substance: USTEKINUMAB
     Dosage: 90 MILLIGRAM,  8 WEEKS
     Route: 058
     Dates: start: 20200115
  4. STELARA [Suspect]
     Active Substance: USTEKINUMAB
     Dosage: 360 MILLIGRAM
     Route: 042
     Dates: start: 20191120, end: 20191120
  5. PROPOFOL [Concomitant]
     Active Substance: PROPOFOL
     Dosage: 200 MILLIGRAM
     Dates: start: 20190523, end: 20190523
  6. Salofalk [Concomitant]
     Indication: Crohn^s disease
     Dosage: UNK
     Dates: start: 20191104
  7. OMEPRAZOLE [Concomitant]
     Active Substance: OMEPRAZOLE
     Dosage: UNK
     Dates: start: 2017
  8. PREDNISONE [Concomitant]
     Active Substance: PREDNISONE
     Indication: Crohn^s disease
     Dosage: UNK
     Dates: start: 20191016
  9. LOPERAMIDE HYDROCHLORIDE [Concomitant]
     Active Substance: LOPERAMIDE HYDROCHLORIDE
     Indication: Crohn^s disease
     Dosage: UNK
     Dates: start: 20191104
  10. METHYLPREDNISOLONE [Concomitant]
     Active Substance: METHYLPREDNISOLONE
     Indication: Crohn^s disease
     Dosage: 17-FEB-2020 TO 26-FEB-2020
     Route: 065
     Dates: start: 20200226
  11. METHYLPREDNISOLONE [Concomitant]
     Active Substance: METHYLPREDNISOLONE
     Dosage: UNK
     Dates: start: 20191016, end: 20191016
  12. MOVIPREP [Concomitant]
     Active Substance: ASCORBIC ACID\POLYETHYLENE GLYCOL 3350\POTASSIUM CHLORIDE\SODIUM ASCORBATE\SODIUM CHLORIDE\SODIUM SU
     Dosage: UNK
     Dates: start: 20190522, end: 20190523
  13. LIDOCAINE [Concomitant]
     Active Substance: LIDOCAINE
     Indication: Crohn^s disease
     Dosage: UNK
     Dates: start: 20190613
  14. PREDNISONE [Concomitant]
     Active Substance: PREDNISONE
     Indication: Crohn^s disease
     Dosage: 20 MILLIGRAM
     Dates: start: 20190508

REACTIONS (1)
  - Crohn^s disease [Recovered/Resolved]

NARRATIVE: CASE EVENT DATE: 20200217
